FAERS Safety Report 4286631-0 (Version None)
Quarter: 2004Q1

REPORT INFORMATION
  Report Type: 
  Country: None (occurrence: None)
  Receive Date: 20040204
  Receipt Date: 20040119
  Transmission Date: 20041129
  Serious: Yes (Hospitalization)
  Sender: FDA-Public Use
  Company Number: 190739

PATIENT
  Sex: Male
  Weight: 90.7194 kg

DRUGS (4)
  1. AVONEX [Suspect]
     Indication: MULTIPLE SCLEROSIS
     Dosage: 30 MCG QW IM
     Route: 030
     Dates: end: 20030101
  2. AVONEX [Suspect]
     Indication: MULTIPLE SCLEROSIS
     Dosage: 30 MCG QW IM
     Route: 030
     Dates: start: 20030101, end: 20030101
  3. DIAZEPAM [Concomitant]
  4. DITROPAN [Concomitant]

REACTIONS (13)
  - AORTIC THROMBOSIS [None]
  - BALANCE DISORDER [None]
  - CHILLS [None]
  - CONTUSION [None]
  - CYANOSIS [None]
  - EMBOLISM [None]
  - FALL [None]
  - INFLUENZA LIKE ILLNESS [None]
  - MULTIPLE SCLEROSIS [None]
  - NEUROGENIC BLADDER [None]
  - PERIPHERAL COLDNESS [None]
  - STRESS SYMPTOMS [None]
  - TREMOR [None]
